FAERS Safety Report 6059550-7 (Version None)
Quarter: 2009Q1

REPORT INFORMATION
  Report Type: 
  Country: None (occurrence: None)
  Receive Date: 20090130
  Receipt Date: 20090121
  Transmission Date: 20090719
  Serious: Yes (Other)
  Sender: FDA-Public Use
  Company Number: US-PFIZER INC-2008152645

PATIENT
  Sex: Male
  Weight: 71.202 kg

DRUGS (10)
  1. VIAGRA [Interacting]
     Indication: ERECTILE DYSFUNCTION
     Dosage: 100 MG, AS NEEDED
     Dates: start: 19980101
  2. AMLODIPINE BESYLATE AND BENAZEPRIL HCL [Interacting]
     Indication: HYPERTENSION
     Dosage: ]
  3. COSOPT [Interacting]
     Indication: GLAUCOMA
     Dosage: UNK
  4. LABETALOL [Interacting]
  5. RAMIPRIL [Concomitant]
  6. LIPITOR [Concomitant]
     Dosage: UNK
  7. CAVERJECT [Concomitant]
     Dosage: UNK
  8. XALATAN [Concomitant]
     Dosage: UNK
  9. ALPHAGAN [Concomitant]
     Dosage: UNK
  10. ASPIRIN [Suspect]
     Dosage: UNK

REACTIONS (4)
  - BLOOD PRESSURE INADEQUATELY CONTROLLED [None]
  - DRUG INEFFECTIVE [None]
  - DRUG INTERACTION [None]
  - ERECTILE DYSFUNCTION [None]
